FAERS Safety Report 8909533 (Version 1)
Quarter: 2012Q4

REPORT INFORMATION
  Report Type: 
  Country: US (occurrence: US)
  Receive Date: 20121115
  Receipt Date: 20121115
  Transmission Date: 20130627
  Serious: Yes (Hospitalization)
  Sender: FDA-Public Use
  Company Number: US-BAYER-2012-116786

PATIENT
  Age: 31 Year
  Sex: Female

DRUGS (2)
  1. OCELLA [Suspect]
  2. IBUPROFEN [Concomitant]
     Indication: PAIN NOS

REACTIONS (2)
  - Deep vein thrombosis [None]
  - Pulmonary embolism [None]
